FAERS Safety Report 18338129 (Version 1)
Quarter: 2020Q4

REPORT INFORMATION
  Report Type: Spontaneous
  Country: NO (occurrence: NO)
  Receive Date: 20201002
  Receipt Date: 20201002
  Transmission Date: 20210113
  Serious: Yes (Other)
  Sender: FDA-Public Use
  Company Number: NO-TEVA-2020-NO-1833254

PATIENT
  Age: 41 Year
  Sex: Female
  Weight: 61 kg

DRUGS (4)
  1. PARALGIN FORTE [ACETAMINOPHEN\CODEINE PHOSPHATE] [Interacting]
     Active Substance: ACETAMINOPHEN\CODEINE PHOSPHATE
     Indication: PRODUCT USED FOR UNKNOWN INDICATION
     Route: 065
  2. OXYCODONE ACTAVIS [Suspect]
     Active Substance: OXYCODONE HYDROCHLORIDE
     Indication: POLYPECTOMY
     Dosage: 5 MG
     Dates: start: 20200815, end: 20200820
  3. OXYCODONE ACTAVIS [Interacting]
     Active Substance: OXYCODONE HYDROCHLORIDE
     Indication: ACROCHORDON EXCISION
  4. OXYCODONE ACTAVIS [Interacting]
     Active Substance: OXYCODONE HYDROCHLORIDE
     Indication: PAIN

REACTIONS (9)
  - Drug interaction [Unknown]
  - Respiratory rate decreased [Unknown]
  - Dyspnoea [Unknown]
  - Somnolence [Unknown]
  - Fatigue [Unknown]
  - Respiratory depression [Recovered/Resolved]
  - Miosis [Unknown]
  - Pulse abnormal [Unknown]
  - Malaise [Unknown]

NARRATIVE: CASE EVENT DATE: 20200820
